FAERS Safety Report 5708996-2 (Version None)
Quarter: 2008Q2

REPORT INFORMATION
  Report Type: 
  Country: None (occurrence: None)
  Receive Date: 20080416
  Receipt Date: 20080416
  Transmission Date: 20081010
  Serious: Yes (Hospitalization)
  Sender: FDA-Public Use
  Company Number: None

PATIENT
  Age: 65 Year
  Sex: Female
  Weight: 90 kg

DRUGS (12)
  1. MITOTANE [Suspect]
     Indication: ADRENAL CARCINOMA
     Dosage: 2000MG QID PO
     Route: 048
     Dates: start: 20071201, end: 20071213
  2. DECADRON [Concomitant]
  3. SENOKET [Concomitant]
  4. ENOXAPARIN SODIUM [Concomitant]
  5. ZETIA [Concomitant]
  6. FENTANYL CITRATE [Concomitant]
  7. LASIX [Concomitant]
  8. ATARAX [Concomitant]
  9. LISINOPRIL [Concomitant]
  10. MORPHINE [Concomitant]
  11. OXYCODONE HCL [Concomitant]
  12. SPIRONOLACTONE [Concomitant]

REACTIONS (7)
  - ADRENAL CARCINOMA [None]
  - BLISTER [None]
  - DISEASE PROGRESSION [None]
  - ERYTHEMA MULTIFORME [None]
  - GENERAL PHYSICAL HEALTH DETERIORATION [None]
  - LIP EROSION [None]
  - WOUND SECRETION [None]
